FAERS Safety Report 24698326 (Version 1)
Quarter: 2024Q4

REPORT INFORMATION
  Report Type: Spontaneous
  Country: US (occurrence: US)
  Receive Date: 20241204
  Receipt Date: 20241204
  Transmission Date: 20250115
  Serious: Yes (Hospitalization, Other)
  Sender: ANI
  Company Number: US-ANIPHARMA-2024-US-063353

PATIENT
  Age: 63 Year
  Sex: Female
  Weight: 65.77 kg

DRUGS (4)
  1. CORTICOTROPIN [Suspect]
     Active Substance: CORTICOTROPIN
     Indication: Chronic kidney disease
     Dosage: 40 UNIT TWICE A WEEK RIGHT / LEFT ARM SC ALTERNATE BY NURSE
     Route: 058
     Dates: start: 20240722, end: 20241107
  2. LOSARTAN [Concomitant]
     Active Substance: LOSARTAN
  3. HYDRALAZINE [Concomitant]
     Active Substance: HYDRALAZINE HYDROCHLORIDE
  4. FUROSEMIDE [Concomitant]
     Active Substance: FUROSEMIDE
     Dosage: 20 MG, THEN INCREASED TO 40 MG ON APPROXIMATELY 11-OCT-2024

REACTIONS (6)
  - Oedema peripheral [Recovering/Resolving]
  - Hypertension [Unknown]
  - Renal failure [Not Recovered/Not Resolved]
  - Coma [Recovered/Resolved]
  - Surgery [Recovering/Resolving]
  - Product use in unapproved indication [Recovered/Resolved]

NARRATIVE: CASE EVENT DATE: 20240722
